FAERS Safety Report 5491627-7 (Version None)
Quarter: 2007Q4

REPORT INFORMATION
  Report Type: 
  Country: None (occurrence: None)
  Receive Date: 20071022
  Receipt Date: 20071015
  Transmission Date: 20080405
  Serious: Yes (Other)
  Sender: FDA-Public Use
  Company Number: US-JNJFOC-20070805138

PATIENT
  Sex: Male
  Weight: 24.04 kg

DRUGS (3)
  1. CONCERTA [Suspect]
     Indication: AGGRESSION
     Route: 048
  2. CONCERTA [Suspect]
     Indication: OPPOSITIONAL DEFIANT DISORDER
     Route: 048
  3. CONCERTA [Suspect]
     Indication: ATTENTION DEFICIT/HYPERACTIVITY DISORDER
     Route: 048

REACTIONS (4)
  - CONSTIPATION [None]
  - HAEMATOCHEZIA [None]
  - HYPERSENSITIVITY [None]
  - RASH [None]
